FAERS Safety Report 24786461 (Version 1)
Quarter: 2024Q4

REPORT INFORMATION
  Report Type: Spontaneous
  Country: DE (occurrence: DE)
  Receive Date: 20241230
  Receipt Date: 20241230
  Transmission Date: 20250114
  Serious: Yes (Disabling)
  Sender: PFIZER
  Company Number: DE-PFIZER INC-202400191900

PATIENT
  Age: 66 Year
  Sex: Male
  Weight: 77 kg

DRUGS (1)
  1. PAXLOVID [Suspect]
     Active Substance: NIRMATRELVIR\RITONAVIR
     Indication: COVID-19 treatment
     Dosage: [NIRMATRELVIR 300 MG]/[RITONAVIR 100 MG]; 2X/DAY
     Route: 048
     Dates: start: 20240611, end: 20240615

REACTIONS (7)
  - Atrial flutter [Recovered/Resolved with Sequelae]
  - Therapeutic product effect incomplete [Recovering/Resolving]
  - Palpitations [Recovered/Resolved]
  - Balance disorder [Recovered/Resolved]
  - Decreased immune responsiveness [Recovered/Resolved]
  - Muscle atrophy [Recovered/Resolved]
  - Vertigo [Unknown]

NARRATIVE: CASE EVENT DATE: 20240101
